FAERS Safety Report 4350541-0 (Version None)
Quarter: 2004Q2

REPORT INFORMATION
  Report Type: 
  Country: None (occurrence: None)
  Receive Date: 20040430
  Receipt Date: 20040419
  Transmission Date: 20050107
  Serious: Yes (Hospitalization)
  Sender: FDA-Public Use
  Company Number: IT-AMGEN-UK073098

PATIENT
  Age: 69 Year
  Sex: Male

DRUGS (7)
  1. NESPO [Suspect]
     Indication: RENAL FAILURE CHRONIC
     Dates: start: 20011012, end: 20011130
  2. BEZAFIBRATE [Suspect]
     Route: 048
  3. RENAGEL [Suspect]
     Dates: start: 20011009, end: 20011130
  4. CALCITRIOL [Concomitant]
  5. ASPIRIN [Concomitant]
  6. CARVEDILOL [Concomitant]
  7. IRBESARTAN [Concomitant]

REACTIONS (1)
  - RHABDOMYOLYSIS [None]
